FAERS Safety Report 25550103 (Version 1)
Quarter: 2025Q3

REPORT INFORMATION
  Report Type: Report from Study
  Country: EU (occurrence: EU)
  Receive Date: 20250714
  Receipt Date: 20250714
  Transmission Date: 20251020
  Serious: Yes (Hospitalization)
  Sender: PURDUE
  Company Number: EU-002147023-NVSC2022NL276315

PATIENT
  Age: 62 Year
  Sex: Male
  Weight: 68 kg

DRUGS (22)
  1. OXYCODONE HYDROCHLORIDE [Suspect]
     Active Substance: OXYCODONE HYDROCHLORIDE
     Indication: Product used for unknown indication
     Route: 065
  2. ABIRATERONE ACETATE [Suspect]
     Active Substance: ABIRATERONE ACETATE
     Indication: Hormone-refractory prostate cancer
     Route: 065
  3. ABIRATERONE ACETATE [Suspect]
     Active Substance: ABIRATERONE ACETATE
     Dosage: 500 MG, BID (2 TIMES PER DAY)
     Route: 048
     Dates: start: 20220823
  4. ACETAMINOPHEN [Concomitant]
     Active Substance: ACETAMINOPHEN
     Indication: Back pain
     Route: 065
     Dates: start: 20220823
  5. OXYCODONE [Concomitant]
     Active Substance: OXYCODONE
     Indication: Sacral pain
     Route: 065
     Dates: start: 20220830, end: 20221129
  6. OXYCODONE [Concomitant]
     Active Substance: OXYCODONE
     Route: 065
     Dates: start: 20220906, end: 20221129
  7. PREDNISONE [Concomitant]
     Active Substance: PREDNISONE
     Indication: Prostate cancer
     Route: 065
     Dates: start: 20220823, end: 20221201
  8. OMEPRAZOLE [Concomitant]
     Active Substance: OMEPRAZOLE
     Indication: Gastrointestinal disorder prophylaxis
     Route: 065
     Dates: start: 20220906, end: 20221227
  9. OMEPRAZOLE [Concomitant]
     Active Substance: OMEPRAZOLE
     Indication: Diaphragmatic hernia
     Route: 065
     Dates: start: 20220906
  10. DENOSUMAB [Concomitant]
     Active Substance: DENOSUMAB
     Indication: General physical condition
     Route: 065
     Dates: start: 20221108, end: 20230301
  11. Colex [Concomitant]
     Indication: Constipation
     Route: 065
     Dates: start: 20221129, end: 20221129
  12. MOVICOLON [Concomitant]
     Active Substance: POLYETHYLENE GLYCOL 3350\POTASSIUM CHLORIDE\SODIUM BICARBONATE\SODIUM CHLORIDE
     Indication: Constipation
     Route: 065
     Dates: start: 20221129, end: 20230829
  13. CANNABIDIOL\HERBALS [Concomitant]
     Active Substance: CANNABIDIOL\HERBALS
     Indication: Sacral pain
     Route: 065
     Dates: start: 20220822
  14. GOSERELIN [Concomitant]
     Active Substance: GOSERELIN
     Indication: Premedication
     Route: 065
     Dates: start: 20170105
  15. METHADONE [Concomitant]
     Active Substance: METHADONE HYDROCHLORIDE
     Indication: Bone pain
     Route: 065
     Dates: start: 20230827, end: 20230901
  16. SODIUM CHLORIDE [Concomitant]
     Active Substance: SODIUM CHLORIDE
     Indication: Hypophagia
     Route: 065
     Dates: start: 20230824, end: 20230825
  17. SODIUM CHLORIDE [Concomitant]
     Active Substance: SODIUM CHLORIDE
     Route: 065
     Dates: start: 20230827, end: 20230829
  18. ZOLEDRONIC ACID [Concomitant]
     Active Substance: ZOLEDRONIC ACID
     Indication: Hypercalcaemia
     Route: 065
     Dates: start: 20230824, end: 20230824
  19. PREGABALIN [Concomitant]
     Active Substance: PREGABALIN
     Indication: Bone pain
     Route: 065
     Dates: start: 20230825, end: 20230831
  20. METOCLOPRAMIDE [Concomitant]
     Active Substance: METOCLOPRAMIDE
     Indication: Nausea
     Route: 065
     Dates: start: 20230827, end: 20230829
  21. DALTEPARIN [Concomitant]
     Active Substance: DALTEPARIN
     Indication: Thrombosis prophylaxis
     Route: 065
     Dates: start: 20230828, end: 20230905
  22. OXAZEPAM [Concomitant]
     Active Substance: OXAZEPAM
     Indication: Discomfort
     Route: 065
     Dates: start: 20230828, end: 20230828

REACTIONS (3)
  - Bone pain [Recovering/Resolving]
  - Constipation [Recovered/Resolved]
  - Bone pain [Recovering/Resolving]

NARRATIVE: CASE EVENT DATE: 20221126
